FAERS Safety Report 18638748 (Version 1)
Quarter: 2020Q4

REPORT INFORMATION
  Report Type: Spontaneous
  Country: US (occurrence: US)
  Receive Date: 20201218
  Receipt Date: 20201218
  Transmission Date: 20210114
  Serious: No
  Sender: FDA-Public Use
  Company Number: US-ROCHE-2371425

PATIENT
  Sex: Female
  Weight: 57.2 kg

DRUGS (3)
  1. ALLOPURINOL. [Suspect]
     Active Substance: ALLOPURINOL
     Indication: PRODUCT USED FOR UNKNOWN INDICATION
     Route: 065
  2. GAZYVA [Suspect]
     Active Substance: OBINUTUZUMAB
     Indication: NON-HODGKIN^S LYMPHOMA
     Dosage: HALF DOSE ;ONGOING: NO
     Route: 042
     Dates: start: 20190320, end: 20190321
  3. GAZYVA [Suspect]
     Active Substance: OBINUTUZUMAB
     Dosage: FULL DOSE ;ONGOING: UNKNOWN
     Route: 042
     Dates: start: 20190327

REACTIONS (9)
  - Musculoskeletal stiffness [Unknown]
  - Night sweats [Unknown]
  - Dizziness [Recovering/Resolving]
  - Fatigue [Unknown]
  - Intentional product use issue [Unknown]
  - Joint stiffness [Unknown]
  - Tendon injury [Unknown]
  - Sensory disturbance [Unknown]
  - Off label use [Unknown]
